FAERS Safety Report 7658418-X (Version None)
Quarter: 2011Q3

REPORT INFORMATION
  Report Type: 
  Country: None (occurrence: None)
  Receive Date: 20110805
  Receipt Date: 20110729
  Transmission Date: 20111222
  Serious: Yes (Death, Hospitalization, Other)
  Sender: FDA-Public Use
  Company Number: JP-ASTELLAS-2011JP004897

PATIENT
  Sex: Female
  Weight: 44.6 kg

DRUGS (40)
  1. PREDNISOLONE [Suspect]
     Indication: SYSTEMIC LUPUS ERYTHEMATOSUS
     Dosage: 5 MG, UNKNOWN/D
     Route: 048
     Dates: start: 19640101
  2. PREDNISOLONE [Suspect]
     Indication: AUTOIMMUNE HEPATITIS
     Dosage: 30 MG, UNKNOWN/D
     Route: 048
  3. PREDNISOLONE [Suspect]
     Indication: INTERSTITIAL LUNG DISEASE
     Dosage: 14 MG, UNKNOWN/D
     Route: 048
     Dates: start: 20081201
  4. PREDNISOLONE [Suspect]
     Dosage: 32.5 MG, UNKNOWN/D
     Route: 048
     Dates: start: 20100513
  5. PREDNISOLONE [Suspect]
     Dosage: 18 MG, UNKNOWN/D
     Route: 048
     Dates: start: 20100803
  6. RIFAMPICIN [Concomitant]
     Indication: DISSEMINATED TUBERCULOSIS
     Dosage: UNK
     Route: 065
  7. STREPTOMYCIN [Concomitant]
     Indication: DISSEMINATED TUBERCULOSIS
     Dosage: UNK
     Route: 065
  8. PREDNISOLONE [Suspect]
     Dosage: 30 MG, UNKNOWN/D
     Route: 048
     Dates: start: 20100122
  9. PREDNISOLONE [Suspect]
     Dosage: 20 MG, UNKNOWN/D
     Route: 048
     Dates: start: 20100409
  10. PREDNISOLONE [Suspect]
     Dosage: 35 MG, UNKNOWN/D
     Route: 048
     Dates: start: 20100503
  11. PREDNISOLONE [Suspect]
     Dosage: 27.5 MG, UNKNOWN/D
     Route: 048
     Dates: start: 20100528
  12. PROGRAF [Suspect]
     Dosage: 2 MG, UNKNOWN/D
     Route: 048
     Dates: start: 20100219, end: 20100423
  13. PREDNISOLONE [Suspect]
     Dosage: 80 MG, UNKNOWN/D
     Route: 048
     Dates: start: 20100423
  14. PREDNISOLONE [Suspect]
     Dosage: 17.5 MG, UNKNOWN/D
     Route: 048
     Dates: start: 20100917
  15. PROGRAF [Suspect]
     Indication: AUTOIMMUNE HEPATITIS
     Dosage: 2 MG, UNKNOWN/D
     Route: 048
     Dates: start: 20070629
  16. PREDNISOLONE [Suspect]
     Dosage: 13 MG, UNKNOWN/D
     Route: 048
     Dates: start: 20090201
  17. PREDNISOLONE [Suspect]
     Dosage: 25 MG, UNKNOWN/D
     Route: 048
     Dates: start: 20100305
  18. PREDNISOLONE [Suspect]
     Dosage: 25 MG, UNKNOWN/D
     Route: 048
     Dates: start: 20100601
  19. LANSOPRAZOLE [Concomitant]
     Indication: GASTRIC ULCER
     Dosage: 30 MG, UNKNOWN/D
     Route: 048
  20. CALBLOCK [Concomitant]
     Indication: HYPERTENSION
     Dosage: 8 MG, UNKNOWN/D
     Route: 048
  21. PYRAZINAMIDE [Concomitant]
     Indication: DISSEMINATED TUBERCULOSIS
     Dosage: UNK
     Route: 065
  22. ISONIAZID [Concomitant]
     Indication: DISSEMINATED TUBERCULOSIS
     Dosage: UNK
     Route: 065
  23. RIFABUTIN [Concomitant]
     Route: 065
  24. PREDNISOLONE [Suspect]
     Dosage: 40 MG, UNKNOWN/D
     Route: 048
     Dates: start: 20100428
  25. PREDNISOLONE [Suspect]
     Dosage: 20 MG, UNKNOWN/D
     Route: 048
     Dates: start: 20100723
  26. PREDNISOLONE [Suspect]
     Dosage: 40 MG, UNKNOWN/D
     Route: 048
     Dates: start: 20101020
  27. BEZATOL [Concomitant]
     Dosage: UNK
     Route: 048
     Dates: start: 20101008
  28. ENALAPRIL MALEATE [Concomitant]
     Indication: HYPERTENSION
     Dosage: 10 MG, UNKNOWN/D
     Route: 048
  29. PREDNISOLONE [Suspect]
     Indication: LUPUS NEPHRITIS
     Dosage: 7.5 MG, UNKNOWN/D
     Route: 048
  30. PREDNISOLONE [Suspect]
     Dosage: 10 MG, UNKNOWN/D
     Route: 048
     Dates: start: 20090508
  31. PREDNISOLONE [Suspect]
     Dosage: 20 MG, UNKNOWN/D
     Route: 048
     Dates: start: 20091225
  32. PREDNISOLONE [Suspect]
     Dosage: 22.5 MG, UNKNOWN/D
     Route: 048
     Dates: start: 20100618
  33. BEZATOL [Concomitant]
     Indication: DYSLIPIDAEMIA
     Dosage: 400 MG, UNKNOWN/D
     Route: 048
     Dates: start: 20091210
  34. BEZATOL [Concomitant]
     Dosage: UNK
     Route: 048
     Dates: end: 20100917
  35. PREDNISOLONE [Suspect]
     Dosage: 22.5 MG, UNKNOWN/D
     Route: 048
     Dates: start: 20100318
  36. URSO 250 [Concomitant]
     Indication: AUTOIMMUNE HEPATITIS
     Dosage: 900 MG, UNKNOWN/D
     Route: 048
  37. ETHAMBUTOL HYDROCHLORIDE [Concomitant]
     Indication: DISSEMINATED TUBERCULOSIS
     Dosage: UNK
     Route: 065
  38. LEVOFLOXACIN [Concomitant]
     Indication: DISSEMINATED TUBERCULOSIS
     Dosage: UNK
     Route: 065
  39. PREDNISOLONE [Suspect]
     Dosage: 27.5 MG, UNKNOWN/D
     Route: 048
     Dates: start: 20100219
  40. PREDNISOLONE [Suspect]
     Dosage: 30 MG, UNKNOWN/D
     Route: 048
     Dates: start: 20100523

REACTIONS (6)
  - DISSEMINATED TUBERCULOSIS [None]
  - GENITAL HERPES [None]
  - INTERSTITIAL LUNG DISEASE [None]
  - EPSTEIN-BARR VIRUS INFECTION [None]
  - HERPES ZOSTER [None]
  - DRUG INEFFECTIVE FOR UNAPPROVED INDICATION [None]
